FAERS Safety Report 25155827 (Version 1)
Quarter: 2025Q2

REPORT INFORMATION
  Report Type: Spontaneous
  Country: US (occurrence: US)
  Receive Date: 20250403
  Receipt Date: 20250403
  Transmission Date: 20250717
  Serious: No
  Sender: BAYER
  Company Number: US-BAYER-2025A045453

PATIENT
  Age: 73 Year
  Sex: Female

DRUGS (1)
  1. MIRALAX [Suspect]
     Active Substance: POLYETHYLENE GLYCOL 3350
     Indication: Colonoscopy
     Dosage: 1 DF, QD 255 GRAMS
     Route: 048
     Dates: start: 20200316, end: 20200316

REACTIONS (2)
  - Product use in unapproved indication [None]
  - Product use complaint [None]

NARRATIVE: CASE EVENT DATE: 20200316
